FAERS Safety Report 8114968-3 (Version None)
Quarter: 2012Q1

REPORT INFORMATION
  Report Type: 
  Country: None (occurrence: None)
  Receive Date: 20120206
  Receipt Date: 20120125
  Transmission Date: 20120608
  Serious: Yes (Hospitalization)
  Sender: FDA-Public Use
  Company Number: US-BRISTOL-MYERS SQUIBB COMPANY-16360703

PATIENT
  Age: 64 Year
  Sex: Male

DRUGS (35)
  1. MULTIPLE VITAMINS [Concomitant]
     Dosage: 1 DF= 1TAB
     Route: 048
  2. SIMVASTATIN [Concomitant]
     Route: 048
  3. GOSERELIN ACETATE [Suspect]
     Indication: PROSTATE CANCER
     Route: 030
  4. LEUPROLIDE ACETATE [Suspect]
     Indication: PROSTATE CANCER
     Route: 030
     Dates: start: 20111115
  5. IOHEXOL [Concomitant]
     Route: 048
  6. PIPERACILLIN AND TAZOBACTAM [Concomitant]
     Route: 042
  7. SODIUM CHLORIDE [Concomitant]
     Dosage: 1 DF=10,1000ML.DOSAGE=Q16H,Q3HPRN,Q6HPM
     Route: 042
  8. ACETAMINOPHEN [Concomitant]
     Route: 048
  9. DIPHENHYDRAMINE HCL [Concomitant]
     Route: 042
  10. MORPHINE [Concomitant]
     Dosage: 1 DF=2,1MG
     Route: 042
  11. SENNA-MINT WAF [Concomitant]
     Dosage: 1 DF=2TAB
     Route: 048
  12. VALSARTAN [Concomitant]
     Route: 048
  13. ALBUMIN (HUMAN) [Concomitant]
     Route: 042
  14. METOCLOPRAMIDE [Concomitant]
     Route: 042
  15. PANTOPRAZOLE SODIUM [Concomitant]
     Route: 048
  16. ZOLPIDEM TARTRATE [Concomitant]
     Dosage: 1 DF=HSPRN
     Route: 048
  17. METFORMIN HCL [Concomitant]
  18. LUPRON [Concomitant]
     Route: 030
  19. DEGARELIX ACETATE [Suspect]
     Indication: PROSTATE CANCER
     Route: 058
  20. GLIMEPIRIDE [Concomitant]
     Route: 048
  21. IPRATROPIUM BROMIDE [Concomitant]
     Dosage: DOSAGE-RTMED
     Route: 055
  22. MAGNESIUM SULFATE [Concomitant]
     Route: 042
  23. CALCIUM [Concomitant]
  24. DIOVAN [Concomitant]
  25. MOBIC [Concomitant]
  26. DEXTROSE [Concomitant]
     Dosage: DOSAGE-UD
     Route: 042
  27. LASIX [Concomitant]
  28. IPILIMUMAB [Suspect]
     Indication: PROSTATE CANCER
     Dosage: ALSO ON 20SEP11,18OCT11,15NOV11
     Route: 042
     Dates: start: 20110824
  29. ACETAMINOPHEN AND HYDROCODONE BITARTRATE [Concomitant]
     Dosage: 1 DF=2,1TAB
     Route: 048
  30. ENOXAPARIN [Concomitant]
     Route: 058
  31. ASPIRIN [Concomitant]
     Route: 048
  32. HUMULIN R [Concomitant]
     Route: 058
  33. VANCOMYCIN HCL [Concomitant]
     Route: 042
  34. VITAMIN D [Concomitant]
  35. TRAMADOL HCL [Concomitant]

REACTIONS (5)
  - RENAL FAILURE [None]
  - OEDEMA PERIPHERAL [None]
  - PAIN IN EXTREMITY [None]
  - DYSPNOEA [None]
  - GENERALISED OEDEMA [None]
